FAERS Safety Report 7774936-8 (Version None)
Quarter: 2011Q3

REPORT INFORMATION
  Report Type: 
  Country: None (occurrence: None)
  Receive Date: 20110921
  Receipt Date: 20110914
  Transmission Date: 20111222
  Serious: Yes (Hospitalization, Other)
  Sender: FDA-Public Use
  Company Number: NSR_00261_2011

PATIENT
  Age: 43 Year
  Sex: Female

DRUGS (1)
  1. PROPRANOLOL [Suspect]
     Indication: PRODUCT USED FOR UNKNOWN INDICATION
     Dosage: (60 MG QD)

REACTIONS (10)
  - NAUSEA [None]
  - VOMITING [None]
  - CHEST DISCOMFORT [None]
  - DYSPNOEA [None]
  - PALPITATIONS [None]
  - BLOOD PRESSURE DECREASED [None]
  - SINUS TACHYCARDIA [None]
  - ELECTROCARDIOGRAM T WAVE INVERSION [None]
  - HYPERHIDROSIS [None]
  - PHAEOCHROMOCYTOMA [None]
